FAERS Safety Report 4518025-4 (Version None)
Quarter: 2004Q4

REPORT INFORMATION
  Report Type: 
  Country: None (occurrence: None)
  Receive Date: 20041203
  Receipt Date: 20041126
  Transmission Date: 20050328
  Serious: Yes (Other)
  Sender: FDA-Public Use
  Company Number: JP-JNJFOC-20041106871

PATIENT
  Sex: Female

DRUGS (10)
  1. RISPERDAL [Suspect]
     Indication: SCHIZOPHRENIA
     Route: 049
  2. OREN-GEDOKU-TO [Concomitant]
     Route: 049
  3. OREN-GEDOKU-TO [Concomitant]
     Route: 049
  4. OREN-GEDOKU-TO [Concomitant]
     Route: 049
  5. ESTAZOLAM [Concomitant]
     Route: 049
  6. FLURAZEPAM HCL [Concomitant]
     Route: 049
  7. PROMETHAZINE HCL [Concomitant]
     Route: 049
  8. TRIHEXYPHENIDYL HYDROCHLORIDE [Concomitant]
     Route: 049
  9. ECABET SODIUM [Concomitant]
     Route: 049
  10. RILMAZAFONE HYDROCHLORIDE [Concomitant]
     Route: 049

REACTIONS (4)
  - HAEMATOCRIT DECREASED [None]
  - HAEMOGLOBIN DECREASED [None]
  - RED BLOOD CELL COUNT DECREASED [None]
  - WHITE BLOOD CELL COUNT DECREASED [None]
